FAERS Safety Report 6434800-3 (Version None)
Quarter: 2009Q4

REPORT INFORMATION
  Report Type: 
  Country: None (occurrence: None)
  Receive Date: 20091109
  Receipt Date: 20091109
  Transmission Date: 20100525
  Serious: Yes (Life-Threatening)
  Sender: FDA-Public Use
  Company Number: None

PATIENT
  Age: 12 Year
  Sex: Male
  Weight: 32.659 kg

DRUGS (1)
  1. VYVANSE [Suspect]
     Indication: ATTENTION DEFICIT/HYPERACTIVITY DISORDER
     Dosage: 1 CAPULES IN MORNINGS PO
     Route: 048
     Dates: start: 20091025, end: 20091105

REACTIONS (4)
  - FORMICATION [None]
  - HALLUCINATION, VISUAL [None]
  - MYALGIA [None]
  - OEDEMA PERIPHERAL [None]
